FAERS Safety Report 13188677 (Version 2)
Quarter: 2017Q1

REPORT INFORMATION
  Report Type: Spontaneous
  Country: CA (occurrence: CA)
  Receive Date: 20170206
  Receipt Date: 20170215
  Transmission Date: 20170428
  Serious: Yes (Other)
  Sender: FDA-Public Use
  Company Number: CA-GLAXOSMITHKLINE-CA2017GSK014457

PATIENT
  Sex: Female

DRUGS (1)
  1. VENTOLIN [Suspect]
     Active Substance: ALBUTEROL SULFATE
     Indication: PRODUCT USED FOR UNKNOWN INDICATION

REACTIONS (9)
  - Fungal pharyngitis [Unknown]
  - Diverticulitis [Unknown]
  - Candida infection [Unknown]
  - Auditory disorder [Unknown]
  - Osteoporosis [Unknown]
  - Tooth disorder [Unknown]
  - Nasal polyps [Unknown]
  - Osteoarthritis [Unknown]
  - Aural polyp [Unknown]

NARRATIVE: CASE EVENT DATE: 2016
